FAERS Safety Report 4887414-0 (Version None)
Quarter: 2006Q1

REPORT INFORMATION
  Report Type: 
  Country: None (occurrence: None)
  Receive Date: 20060118
  Receipt Date: 20060104
  Transmission Date: 20060701
  Serious: Yes (Death, Other)
  Sender: FDA-Public Use
  Company Number: WAES 0601KOR00004

PATIENT
  Age: 29 Year
  Sex: Female

DRUGS (7)
  1. CANCIDAS [Suspect]
     Indication: BRONCHOPULMONARY ASPERGILLOSIS
     Dosage: 70 MG/DAILY, IV
     Route: 042
     Dates: start: 20050630, end: 20050630
  2. INJ CANCIDAS (CASPOGUNGIN ACETATE) [Suspect]
     Indication: BRONCHOPULMONARY ASPERGILLOSIS
     Dosage: 50 MG/DAILY IV
     Route: 042
     Dates: start: 20050701, end: 20050727
  3. AMIKACIN SULFATE [Concomitant]
  4. CEFTAZIDIME [Concomitant]
  5. IMIPENEM [Concomitant]
  6. ROXITHROMYCIN [Concomitant]
  7. TEICOPLANIN [Concomitant]

REACTIONS (3)
  - ALANINE AMINOTRANSFERASE INCREASED [None]
  - ASPARTATE AMINOTRANSFERASE INCREASED [None]
  - SEPTIC SHOCK [None]
